FAERS Safety Report 7327300-X (Version None)
Quarter: 2011Q1

REPORT INFORMATION
  Report Type: 
  Country: None (occurrence: None)
  Receive Date: 20110302
  Receipt Date: 20110228
  Transmission Date: 20110831
  Serious: Yes (Other)
  Sender: FDA-Public Use
  Company Number: ES-ABBOTT-11P-144-0708138-00

PATIENT
  Age: 18 Year
  Sex: Male

DRUGS (5)
  1. DEPAKENE [Suspect]
     Dosage: AT BEDTIME
     Route: 048
     Dates: start: 20110201, end: 20110201
  2. DEPAKENE [Suspect]
     Route: 048
     Dates: start: 20110201, end: 20110201
  3. DEPAKENE [Suspect]
     Route: 048
     Dates: start: 20110201, end: 20110201
  4. DEPAKENE [Suspect]
     Dosage: AT BEDTIME
     Route: 048
     Dates: start: 20110221
  5. DEPAKENE [Suspect]
     Indication: CYCLOTHYMIC DISORDER
     Dosage: AT BEDTIME
     Route: 048
     Dates: start: 20110201, end: 20110201

REACTIONS (6)
  - TREATMENT NONCOMPLIANCE [None]
  - INCORRECT DOSE ADMINISTERED [None]
  - DYSPEPSIA [None]
  - DIARRHOEA [None]
  - VOMITING [None]
  - OFF LABEL USE [None]
